FAERS Safety Report 5704443-5 (Version None)
Quarter: 2008Q2

REPORT INFORMATION
  Report Type: 
  Country: None (occurrence: None)
  Receive Date: 20080414
  Receipt Date: 20080404
  Transmission Date: 20081010
  Serious: Yes (Life-Threatening)
  Sender: FDA-Public Use
  Company Number: D0056189A

PATIENT
  Age: 77 Year
  Sex: Male
  Weight: 71 kg

DRUGS (3)
  1. ARIXTRA [Suspect]
     Dosage: 2.5MG PER DAY
     Route: 058
     Dates: start: 20080204, end: 20080209
  2. HEPARIN [Concomitant]
     Route: 065
     Dates: start: 20080201
  3. AGGRASTAT [Concomitant]
     Route: 065
     Dates: start: 20080201, end: 20080202

REACTIONS (11)
  - ABDOMINAL PAIN UPPER [None]
  - BLOOD CREATINE PHOSPHOKINASE MB INCREASED [None]
  - CORONARY ANGIOPLASTY [None]
  - CORONARY ARTERY OCCLUSION [None]
  - HEMIPARESIS [None]
  - INFLAMMATION [None]
  - MUSCULAR WEAKNESS [None]
  - PNEUMONIA [None]
  - THROMBOSIS [None]
  - TRANSIENT ISCHAEMIC ATTACK [None]
  - TROPONIN T INCREASED [None]
